FAERS Safety Report 25664100 (Version 1)
Quarter: 2025Q3

REPORT INFORMATION
  Report Type: Spontaneous
  Country: US (occurrence: US)
  Receive Date: 20250811
  Receipt Date: 20250811
  Transmission Date: 20251021
  Serious: Yes (Other)
  Sender: SANDOZ
  Company Number: US-SANDOZ-SDZ2025US056630

PATIENT
  Age: 2 Year
  Sex: Female

DRUGS (1)
  1. POLYMYXIN B SULFATE\TRIMETHOPRIM SULFATE [Suspect]
     Active Substance: POLYMYXIN B SULFATE\TRIMETHOPRIM SULFATE
     Indication: Conjunctivitis
     Route: 047
     Dates: start: 202508

REACTIONS (1)
  - Hypersensitivity [Unknown]

NARRATIVE: CASE EVENT DATE: 20250801
